FAERS Safety Report 5822199-2 (Version None)
Quarter: 2008Q3

REPORT INFORMATION
  Report Type: 
  Country: None (occurrence: None)
  Receive Date: 20080725
  Receipt Date: 20080716
  Transmission Date: 20090109
  Serious: Yes (Other)
  Sender: FDA-Public Use
  Company Number: US-JNJFOC-20080505828

PATIENT
  Sex: Female
  Weight: 75.3 kg

DRUGS (6)
  1. REMICADE [Suspect]
     Indication: RHEUMATOID ARTHRITIS
     Route: 042
  2. MELOXICAM [Concomitant]
     Indication: RHEUMATOID ARTHRITIS
  3. PREDNISONE TAB [Concomitant]
     Indication: RHEUMATOID ARTHRITIS
  4. LYRICA [Concomitant]
     Indication: FIBROMYALGIA
  5. CYMBALTA [Concomitant]
     Indication: FIBROMYALGIA
  6. AMITRIPTYLINE HCL [Concomitant]

REACTIONS (1)
  - DIPLOPIA [None]
